FAERS Safety Report 7495781-7 (Version None)
Quarter: 2011Q2

REPORT INFORMATION
  Report Type: 
  Country: None (occurrence: None)
  Receive Date: 20110523
  Receipt Date: 20110516
  Transmission Date: 20111010
  Serious: Yes (Other)
  Sender: FDA-Public Use
  Company Number: GB-ELI_LILLY_AND_COMPANY-GB201104000798

PATIENT
  Age: 16 Year

DRUGS (1)
  1. PROZAC [Suspect]
     Dosage: 20 MG, UNK
     Dates: start: 20110101

REACTIONS (1)
  - SYNCOPE [None]
